FAERS Safety Report 20534378 (Version 3)
Quarter: 2022Q2

REPORT INFORMATION
  Report Type: Other
  Country: NL (occurrence: None)
  Receive Date: 20220302
  Receipt Date: 20220428
  Transmission Date: 20220721
  Serious: No
  Sender: FDA-Public Use
  Company Number: NL-ROCHE-3038122

PATIENT
  Age: 27 Year
  Sex: Female
  Weight: 73 kg

DRUGS (2)
  1. OCRELIZUMAB [Suspect]
     Active Substance: OCRELIZUMAB
     Indication: Primary progressive multiple sclerosis
     Route: 042
     Dates: start: 20181129
  2. CHOLECALCIFEROL [Concomitant]
     Active Substance: CHOLECALCIFEROL
     Route: 048
     Dates: start: 20170203

REACTIONS (2)
  - COVID-19 [Recovered/Resolved]
  - Burnout syndrome [Recovered/Resolved with Sequelae]

NARRATIVE: CASE EVENT DATE: 20211001
